FAERS Safety Report 8805294 (Version 2)
Quarter: 2015Q3

REPORT INFORMATION
  Report Type: Report from Study
  Country: US (occurrence: US)
  Receive Date: 20120924
  Receipt Date: 20150804
  Transmission Date: 20151125
  Serious: Yes (Death)
  Sender: FDA-Public Use
  Company Number: US-ROCHE-1126095

PATIENT
  Sex: Female
  Weight: 79.09 kg

DRUGS (11)
  1. AVASTIN [Suspect]
     Active Substance: BEVACIZUMAB
     Route: 042
  2. TYLENOL #1 (UNITED STATES) [Concomitant]
     Route: 048
  3. ATROPINE INTRAVENOUS [Concomitant]
     Indication: DIARRHOEA
     Route: 042
  4. AVASTIN [Suspect]
     Active Substance: BEVACIZUMAB
     Route: 042
     Dates: start: 20081021
  5. AVASTIN [Suspect]
     Active Substance: BEVACIZUMAB
     Route: 035
     Dates: start: 20080819
  6. AVASTIN [Suspect]
     Active Substance: BEVACIZUMAB
     Indication: BRAIN NEOPLASM MALIGNANT
     Route: 042
     Dates: start: 20080506
  7. CARBOPLATIN. [Concomitant]
     Active Substance: CARBOPLATIN
  8. ALOXI [Concomitant]
     Active Substance: PALONOSETRON HYDROCHLORIDE
     Route: 042
  9. BENADRYL [Concomitant]
     Active Substance: DIPHENHYDRAMINE HYDROCHLORIDE
     Route: 042
  10. PEPCID [Concomitant]
     Active Substance: FAMOTIDINE
     Route: 042
  11. PHENERGAN [Concomitant]
     Active Substance: PROMETHAZINE HYDROCHLORIDE
     Route: 042

REACTIONS (2)
  - Death [Fatal]
  - Off label use [Unknown]
